FAERS Safety Report 19226703 (Version 1)
Quarter: 2021Q2

REPORT INFORMATION
  Report Type: Spontaneous
  Country: US (occurrence: US)
  Receive Date: 20210506
  Receipt Date: 20210506
  Transmission Date: 20210717
  Serious: Yes (Other)
  Sender: FDA-Public Use
  Company Number: US-AMGEN-USASP2021066344

PATIENT
  Age: 22 Year
  Sex: Male

DRUGS (3)
  1. FILGRASTIM [Suspect]
     Active Substance: FILGRASTIM
     Indication: ALLOGENIC STEM CELL TRANSPLANTATION
     Dosage: 5 MICROGRAM/KILOGRAM, QD (ON DAY 7 POST TRANSPLANT FOR 3 CONS. DAY)
     Route: 058
  2. FLUDARABIN [Concomitant]
     Active Substance: FLUDARABINE PHOSPHATE
     Dosage: 25 MILLIGRAM/SQ. METER QD FOR 5 DAYS
     Route: 042
  3. MELPHALAN. [Concomitant]
     Active Substance: MELPHALAN
     Dosage: 90 MILLIGRAM/SQ. METER, QD FOR 2
     Route: 042

REACTIONS (6)
  - Aspergillus infection [Recovered/Resolved]
  - Chronic graft versus host disease [Recovered/Resolved]
  - Cytomegalovirus infection [Recovered/Resolved]
  - Pulmonary nocardiosis [Recovered/Resolved]
  - Acute graft versus host disease [Unknown]
  - Toxicity to various agents [Unknown]
